FAERS Safety Report 4768616-0 (Version None)
Quarter: 2005Q3

REPORT INFORMATION
  Report Type: 
  Country: None (occurrence: None)
  Receive Date: 20050914
  Receipt Date: 20050907
  Transmission Date: 20060218
  Serious: Yes (Death, Hospitalization)
  Sender: FDA-Public Use
  Company Number: US-JNJFOC-20050901826

PATIENT
  Age: 72 Year
  Sex: Female

DRUGS (4)
  1. CYCLOBENZAPRINE HCL [Suspect]
     Route: 048
  2. ACETAMINOPHEN/PROPOXYPHENE [Suspect]
  3. ACETAMINOPHEN/PROPOXYPHENE [Suspect]
  4. ALPRAZOLAM [Suspect]

REACTIONS (11)
  - BLOOD PRESSURE DECREASED [None]
  - COMPLETED SUICIDE [None]
  - CONFUSIONAL STATE [None]
  - COORDINATION ABNORMAL [None]
  - DYSARTHRIA [None]
  - HYPERTENSION [None]
  - INTENTIONAL MISUSE [None]
  - OVERDOSE [None]
  - RESPIRATORY ARREST [None]
  - SOMNOLENCE [None]
  - THERAPY NON-RESPONDER [None]
